FAERS Safety Report 22026002 (Version 1)
Quarter: 2023Q1

REPORT INFORMATION
  Report Type: Spontaneous
  Country: US (occurrence: None)
  Receive Date: 20230223
  Receipt Date: 20230223
  Transmission Date: 20230417
  Serious: No
  Sender: FDA-Public Use
  Company Number: US-ROCHE-3152373

PATIENT
  Sex: Female

DRUGS (15)
  1. XOLAIR [Suspect]
     Active Substance: OMALIZUMAB
     Indication: Dementia
     Dosage: STRENGTH: 150 MG/ML
     Route: 058
     Dates: start: 20200717
  2. XOLAIR [Suspect]
     Active Substance: OMALIZUMAB
  3. XOLAIR [Suspect]
     Active Substance: OMALIZUMAB
  4. PREDNISONE [Concomitant]
     Active Substance: PREDNISONE
     Route: 048
  5. ALBUTEROL SULFATE [Concomitant]
     Active Substance: ALBUTEROL SULFATE
  6. ALENDRONATE [Concomitant]
     Active Substance: ALENDRONATE SODIUM
     Route: 048
  7. ANTIOXIDANTS (UNK INGREDIENTS) [Concomitant]
     Route: 048
  8. FAMOTIDINE [Concomitant]
     Active Substance: FAMOTIDINE
     Route: 048
  9. FISH OIL [Concomitant]
     Active Substance: FISH OIL
     Route: 048
  10. LORATADINE [Concomitant]
     Active Substance: LORATADINE
     Route: 048
  11. OMEPRAZOLE [Concomitant]
     Active Substance: OMEPRAZOLE
     Route: 048
  12. VITAMIN B [Concomitant]
     Active Substance: VITAMIN B
     Route: 048
  13. VITAMIN C [Concomitant]
     Active Substance: ASCORBIC ACID
     Route: 048
  14. IBUPROFEN [Concomitant]
     Active Substance: IBUPROFEN
  15. MONTELUKAST [Concomitant]
     Active Substance: MONTELUKAST SODIUM
     Route: 048

REACTIONS (2)
  - Illness [Unknown]
  - Product dose omission issue [Unknown]
